FAERS Safety Report 9887400 (Version 5)
Quarter: 2014Q2

REPORT INFORMATION
  Report Type: Spontaneous
  Country: JP (occurrence: JP)
  Receive Date: 20140211
  Receipt Date: 20140523
  Transmission Date: 20141212
  Serious: Yes (Hospitalization)
  Sender: FDA-Public Use
  Company Number: JP-AMGEN-JPNSP2014009503

PATIENT
  Age: 65 Year
  Sex: Female
  Weight: 82 kg

DRUGS (9)
  1. RANMARK [Suspect]
     Indication: BREAST CANCER
     Dosage: 120 MG, Q4WK
     Route: 058
     Dates: start: 20121024, end: 20140115
  2. XELODA [Concomitant]
     Indication: BREAST CANCER
     Dosage: 900 MG, BID
     Route: 048
     Dates: start: 20120912
  3. HERCEPTIN [Concomitant]
     Indication: BREAST CANCER
     Dosage: UNKNOWN
     Route: 042
     Dates: start: 20051201
  4. LIPITOR [Concomitant]
     Indication: DYSLIPIDAEMIA
     Dosage: 10 MG, QD
     Route: 048
     Dates: start: 20100524
  5. GASTROM [Concomitant]
     Dosage: 1.5 G, QD
     Route: 048
     Dates: start: 20100524
  6. NEXIUM                             /01479302/ [Concomitant]
     Dosage: 20 MG, QD
     Route: 048
     Dates: start: 20121024
  7. HYPEN                              /00613801/ [Concomitant]
     Dosage: 200 MG, BID
     Route: 048
     Dates: start: 20120912
  8. CALCIUM LACTATE [Concomitant]
     Dosage: 4 G, BID
     Route: 048
     Dates: start: 20121003
  9. ALFAROL [Concomitant]
     Dosage: 1 MUG, QD
     Route: 048
     Dates: start: 20121003

REACTIONS (1)
  - Atypical femur fracture [Recovering/Resolving]
